FAERS Safety Report 5761847-2 (Version None)
Quarter: 2008Q2

REPORT INFORMATION
  Report Type: 
  Country: None (occurrence: None)
  Receive Date: 20080606
  Receipt Date: 20080527
  Transmission Date: 20081010
  Serious: Yes (Other)
  Sender: FDA-Public Use
  Company Number: GB-PFIZER INC-2008046105

PATIENT
  Sex: Male

DRUGS (1)
  1. CHANTIX [Suspect]
     Route: 048

REACTIONS (8)
  - ABDOMINAL DISTENSION [None]
  - ARTHRALGIA [None]
  - CONTUSION [None]
  - DIZZINESS [None]
  - FLATULENCE [None]
  - INSOMNIA [None]
  - MUSCULOSKELETAL STIFFNESS [None]
  - PAIN IN EXTREMITY [None]
